FAERS Safety Report 4478126-6 (Version None)
Quarter: 2004Q4

REPORT INFORMATION
  Report Type: 
  Country: None (occurrence: None)
  Receive Date: 20041013
  Receipt Date: 20040922
  Transmission Date: 20050328
  Serious: Yes (Hospitalization)
  Sender: FDA-Public Use
  Company Number: DE_040914335

PATIENT
  Age: 55 Year
  Sex: Male
  Weight: 61 kg

DRUGS (5)
  1. HUMALOG [Suspect]
     Indication: DIABETES MELLITUS INSULIN-DEPENDENT
     Dates: start: 19960601
  2. LANTUS [Concomitant]
  3. PROSTAGUTT [Concomitant]
  4. DEXIUM(CALCIUM DOBESILATE) [Concomitant]
  5. GUMBARAL(ADEMETIONINE TOSILATE SULFATE) [Concomitant]

REACTIONS (9)
  - CARBOHYDRATE ANTIGEN 19-9 INCREASED [None]
  - CARCINOEMBRYONIC ANTIGEN INCREASED [None]
  - COLORECTAL CANCER METASTATIC [None]
  - HEPATIC MASS [None]
  - LIPOHYPERTROPHY [None]
  - LIVER DISORDER [None]
  - METASTASES TO LIVER [None]
  - TUMOUR MARKER INCREASED [None]
  - TUMOUR NECROSIS [None]
